FAERS Safety Report 4342676-3 (Version None)
Quarter: 2004Q1

REPORT INFORMATION
  Report Type: 
  Country: None (occurrence: None)
  Receive Date: 20040213
  Receipt Date: 20031027
  Transmission Date: 20041129
  Serious: Yes (Hospitalization)
  Sender: FDA-Public Use
  Company Number: 350288

PATIENT
  Age: 46 Year
  Sex: Female

DRUGS (3)
  1. PEGASYS [Suspect]
     Indication: HEPATITIS C
     Dosage: SUBCUTANEOUS
     Route: 058
     Dates: start: 20030923, end: 20031023
  2. COPEGUS [Suspect]
     Indication: HEPATITIS C
     Dosage: 5 DOSE FORM DAILY ORAL
     Route: 048
     Dates: start: 20030923, end: 20031023
  3. NARCOTICS [Concomitant]

REACTIONS (4)
  - DIABETES MELLITUS [None]
  - HYPERGLYCAEMIA [None]
  - LETHARGY [None]
  - LOSS OF CONSCIOUSNESS [None]
